FAERS Safety Report 10379787 (Version 1)
Quarter: 2014Q3

REPORT INFORMATION
  Report Type: Spontaneous
  Country: CA (occurrence: CA)
  Receive Date: 20140812
  Receipt Date: 20140812
  Transmission Date: 20150326
  Serious: Yes (Hospitalization)
  Sender: FDA-Public Use
  Company Number: CA-B.I. PHARMACEUTICALS,INC./RIDGEFIELD-2014-BI-36236CN

PATIENT
  Age: 75 Year
  Sex: Male

DRUGS (11)
  1. HYDRODIURIL [Concomitant]
     Active Substance: HYDROCHLOROTHIAZIDE
     Dosage: 12.5 MG
     Route: 048
  2. ALPHAGAN P [Concomitant]
     Active Substance: BRIMONIDINE TARTRATE
     Dosage: FORMULATION: LIQUID OPTHALMIC; ROUTE: OPTHALMIC; STRENGTH: 2.0 DROPS; DAILY DOSE: 4.0 DROPS
     Route: 050
  3. XALATAN [Concomitant]
     Active Substance: LATANOPROST
     Dosage: FORMULATION: SOLUTION OPTHALMIC; STRENGTH: 2.0 DROPS
     Route: 065
  4. NITRO-DUR [Concomitant]
     Active Substance: NITROGLYCERIN
     Dosage: 1.2 MG
     Route: 065
  5. AVAPRO [Concomitant]
     Active Substance: IRBESARTAN
     Dosage: 150 MG
     Route: 048
  6. PREVACID [Concomitant]
     Active Substance: LANSOPRAZOLE
     Dosage: 30 MG
     Route: 048
  7. AGGRENOX [Suspect]
     Active Substance: ASPIRIN\DIPYRIDAMOLE
     Indication: PRODUCT USED FOR UNKNOWN INDICATION
     Dosage: 2 ANZ
     Route: 048
  8. SECTRAL [Concomitant]
     Active Substance: ACEBUTOLOL HYDROCHLORIDE
     Dosage: 400 MG
     Route: 048
  9. SERAX [Concomitant]
     Active Substance: OXAZEPAM
     Route: 048
  10. NORVASC [Concomitant]
     Active Substance: AMLODIPINE BESYLATE
     Dosage: 2.5 MG
     Route: 048
  11. ZOCOR [Concomitant]
     Active Substance: SIMVASTATIN
     Dosage: 20 MG
     Route: 048

REACTIONS (5)
  - Shock [Recovered/Resolved]
  - Diarrhoea [Recovered/Resolved]
  - Asthenia [Recovered/Resolved]
  - Abdominal pain upper [Recovered/Resolved]
  - Nausea [Recovered/Resolved]
